FAERS Safety Report 14793737 (Version 1)
Quarter: 2018Q2

REPORT INFORMATION
  Report Type: Spontaneous
  Country: DE (occurrence: DE)
  Receive Date: 20180423
  Receipt Date: 20180423
  Transmission Date: 20180711
  Serious: Yes (Hospitalization, Other)
  Sender: FDA-Public Use
  Company Number: DE-GLAXOSMITHKLINE-DE2018065329

PATIENT
  Age: 61 Year
  Sex: Female

DRUGS (6)
  1. VENLAFAXINE [Concomitant]
     Active Substance: VENLAFAXINE HYDROCHLORIDE
     Dosage: 150 MG 1-0-0-0
     Route: 065
  2. HYDROCHLOROTHIAZIDE. [Concomitant]
     Active Substance: HYDROCHLOROTHIAZIDE
     Dosage: 12.5 MG, 1-0-0-0
     Route: 065
  3. EUTHYROX [Concomitant]
     Active Substance: LEVOTHYROXINE SODIUM
     Dosage: 125 UG, 1-0-0-0
     Route: 065
  4. PANTOPRAZOLE [Concomitant]
     Active Substance: PANTOPRAZOLE
     Dosage: 40 MG,  1-0-0-0
     Route: 065
  5. ENALAPRIL [Concomitant]
     Active Substance: ENALAPRIL
     Dosage: 5 MG, 1-0-0-0
     Route: 065
  6. DICLOFENAC [Suspect]
     Active Substance: DICLOFENAC
     Indication: PRODUCT USED FOR UNKNOWN INDICATION
     Dosage: NK
     Route: 065

REACTIONS (15)
  - Medication monitoring error [Unknown]
  - Wrong drug administered [Unknown]
  - Nausea [Unknown]
  - Contraindicated product administered [Unknown]
  - Orthostatic intolerance [Unknown]
  - Urticaria [Unknown]
  - Medication error [Unknown]
  - Bradycardia [Unknown]
  - Pruritus [Unknown]
  - Dyspnoea [Unknown]
  - Acute respiratory failure [Unknown]
  - Rash [Unknown]
  - Anal incontinence [Unknown]
  - Swollen tongue [Unknown]
  - Paraesthesia oral [Unknown]
